FAERS Safety Report 6561400-7 (Version None)
Quarter: 2010Q1

REPORT INFORMATION
  Report Type: 
  Country: None (occurrence: None)
  Receive Date: 20100130
  Receipt Date: 20091013
  Transmission Date: 20100710
  Serious: No
  Sender: FDA-Public Use
  Company Number: US-ABBOTT-09P-163-0603002-00

PATIENT
  Sex: Female

DRUGS (5)
  1. HUMIRA [Suspect]
     Indication: RHEUMATOID ARTHRITIS
     Dates: start: 20070101, end: 20070101
  2. TOPICAL CREAM, NAME UNKNOWN [Suspect]
     Dates: start: 20070101, end: 20070101
  3. SYNTHROID [Concomitant]
     Indication: HYPOTHYROIDISM
  4. MIRAPEX [Concomitant]
     Indication: DRUG USE FOR UNKNOWN INDICATION
  5. KLONOPIN [Concomitant]
     Indication: DRUG USE FOR UNKNOWN INDICATION

REACTIONS (2)
  - RASH PRURITIC [None]
  - SKIN DEPIGMENTATION [None]
